FAERS Safety Report 5568685-4 (Version None)
Quarter: 2007Q4

REPORT INFORMATION
  Report Type: 
  Country: None (occurrence: None)
  Receive Date: 20071217
  Receipt Date: 20071130
  Transmission Date: 20080405
  Serious: Yes (Hospitalization)
  Sender: FDA-Public Use
  Company Number: 015#3#2007-00016

PATIENT
  Age: 92 Year
  Sex: Female

DRUGS (7)
  1. OMEPRAZOLE [Suspect]
     Indication: ATRIAL FIBRILLATION
     Route: 048
     Dates: start: 20060101
  2. TRIFLUSAL (TRIFLUSAL) [Suspect]
     Indication: ATRIAL FIBRILLATION
     Dosage: N.R.
     Dates: start: 20060101
  3. ALPRAZOLAM [Suspect]
     Dates: start: 20060101
  4. ATORVASTATIN CALCIUM [Suspect]
     Indication: HYPERLIPIDAEMIA
     Dates: start: 20060101
  5. FUROSEMIDE [Suspect]
     Indication: HYPERTENSION
     Route: 048
     Dates: start: 20060101
  6. DIGOXIN [Suspect]
     Indication: ATRIAL FIBRILLATION
     Dates: start: 20060101
  7. NIMODIPINE [Suspect]
     Indication: HYPERTENSION
     Dates: start: 20060101

REACTIONS (1)
  - HEPATITIS TOXIC [None]
